FAERS Safety Report 4605990-X (Version None)
Quarter: 2005Q1

REPORT INFORMATION
  Report Type: 
  Country: None (occurrence: None)
  Receive Date: 20050311
  Receipt Date: 20030204
  Transmission Date: 20050727
  Serious: Yes (Hospitalization, Other)
  Sender: FDA-Public Use
  Company Number: US-GLAXOSMITHKLINE-A0396232A

PATIENT
  Age: 28 Year
  Sex: Female
  Weight: 57.3 kg

DRUGS (5)
  1. BC HEADACHE POWDER [Suspect]
     Indication: NASOPHARYNGITIS
     Route: 048
     Dates: start: 19870209
  2. ASPIRIN [Concomitant]
  3. MIDRIN [Concomitant]
  4. MIGRAINE MEDICATION [Concomitant]
  5. ORAL CONTRACEPTIVE [Concomitant]

REACTIONS (18)
  - AMNESIA [None]
  - CONJUNCTIVITIS [None]
  - DIPLOPIA [None]
  - DIZZINESS [None]
  - EYE MOVEMENT DISORDER [None]
  - EYELID PTOSIS [None]
  - FACIAL WASTING [None]
  - HEADACHE [None]
  - HYPOAESTHESIA [None]
  - IIIRD NERVE PARALYSIS [None]
  - INTRACRANIAL ANEURYSM [None]
  - NAUSEA [None]
  - NECK PAIN [None]
  - PUPILS UNEQUAL [None]
  - SUBARACHNOID HAEMORRHAGE [None]
  - THROMBOSIS [None]
  - VISUAL DISTURBANCE [None]
  - VOMITING [None]
